FAERS Safety Report 25674012 (Version 2)
Quarter: 2025Q3

REPORT INFORMATION
  Report Type: Spontaneous
  Country: US (occurrence: US)
  Receive Date: 20250813
  Receipt Date: 20250903
  Transmission Date: 20251021
  Serious: Yes (Other)
  Sender: ASTELLAS
  Company Number: US-ASTELLAS-2025-AER-044282

PATIENT
  Age: 46 Year
  Sex: Male

DRUGS (2)
  1. PADCEV [Suspect]
     Active Substance: ENFORTUMAB VEDOTIN-EJFV
     Indication: Product used for unknown indication
     Route: 065
  2. KEYTRUDA [Suspect]
     Active Substance: PEMBROLIZUMAB
     Indication: Product used for unknown indication
     Route: 065

REACTIONS (9)
  - Neuropathy peripheral [Unknown]
  - Fatigue [Unknown]
  - Rash [Unknown]
  - Headache [Unknown]
  - Nausea [Unknown]
  - Hepatic enzyme increased [Unknown]
  - Myalgia [Unknown]
  - Arthralgia [Unknown]
  - Weight decreased [Unknown]
